FAERS Safety Report 5156787-6 (Version None)
Quarter: 2006Q4

REPORT INFORMATION
  Report Type: 
  Country: None (occurrence: None)
  Receive Date: 20061115
  Receipt Date: 20061103
  Transmission Date: 20070319
  Serious: Yes (Other)
  Sender: FDA-Public Use
  Company Number: 2006136690

PATIENT
  Sex: Male

DRUGS (1)
  1. LONITEN [Suspect]
     Indication: HYPERTENSION
     Dosage: 2.5 MG (2.5 MG, ONCE DAILY), ORAL
     Route: 048
     Dates: start: 20060329

REACTIONS (6)
  - ANGINA UNSTABLE [None]
  - ASTHENIA [None]
  - DYSPNOEA [None]
  - EXERCISE TOLERANCE DECREASED [None]
  - MYALGIA [None]
  - PAIN IN EXTREMITY [None]
